FAERS Safety Report 13773646 (Version 4)
Quarter: 2018Q3

REPORT INFORMATION
  Report Type: Report from Study
  Country: ZA (occurrence: ZA)
  Receive Date: 20170720
  Receipt Date: 20180918
  Transmission Date: 20181010
  Serious: Yes (Hospitalization, Other)
  Sender: FDA-Public Use
  Company Number: PHHY2017ZA046849

PATIENT
  Sex: Female

DRUGS (6)
  1. NEXIUM [Concomitant]
     Active Substance: ESOMEPRAZOLE MAGNESIUM
     Indication: HELICOBACTER INFECTION
     Dosage: 40 MG, QD
     Route: 065
  2. EXJADE [Suspect]
     Active Substance: DEFERASIROX
     Indication: THALASSAEMIA
     Dosage: 1500 MG, QD
     Route: 065
     Dates: start: 201709
  3. DESFERAL [Suspect]
     Active Substance: DEFEROXAMINE MESYLATE
     Indication: THALASSAEMIA
     Dosage: 5 VIALS 4?5 TIMES A WEEK VIA SYRINGE
     Route: 065
     Dates: start: 1984
  4. NEXIUM [Concomitant]
     Active Substance: ESOMEPRAZOLE MAGNESIUM
     Indication: EPIGASTRIC DISCOMFORT
     Dosage: 1 DF (40 MG), PRN (WHEN REQUIRED)
     Route: 065
     Dates: start: 2016, end: 201801
  5. FERIPROX [Concomitant]
     Active Substance: DEFERIPRONE
     Indication: PRODUCT USED FOR UNKNOWN INDICATION
     Dosage: 8 DF, QD
     Route: 065
  6. PROBIFLORA ADULT EVERYDAY FLORA BALANCE [Concomitant]
     Indication: PRODUCT USED FOR UNKNOWN INDICATION
     Dosage: 1 DF, BID
     Route: 065

REACTIONS (12)
  - Pharyngitis [Recovered/Resolved]
  - Serum ferritin increased [Unknown]
  - Fluid intake reduced [Unknown]
  - Cystitis [Recovered/Resolved]
  - Helicobacter infection [Recovered/Resolved]
  - Gastric ulcer [Unknown]
  - Chromaturia [Unknown]
  - Ear infection [Recovered/Resolved]
  - Kidney infection [Recovered/Resolved]
  - Epigastric discomfort [Recovered/Resolved]
  - Back pain [Unknown]
  - Dyspepsia [Unknown]

NARRATIVE: CASE EVENT DATE: 2016
